FAERS Safety Report 7214136-3 (Version None)
Quarter: 2010Q4

REPORT INFORMATION
  Report Type: 
  Country: None (occurrence: None)
  Receive Date: 20101126
  Receipt Date: 20100330
  Transmission Date: 20110411
  Serious: Yes (Disabling)
  Sender: FDA-Public Use
  Company Number: WAES 0601USA02837

PATIENT
  Age: 51 Year
  Sex: Male
  Weight: 103.8737 kg

DRUGS (10)
  1. FOSAMAX [Suspect]
     Indication: OSTEOPOROSIS
     Dosage: 70 MG/WKY/PO
     Route: 048
     Dates: start: 19950101
  2. FOSAMAX [Suspect]
     Indication: OSTEOPOROSIS
     Dosage: 10 MG/PO
     Route: 048
     Dates: start: 19990304
  3. ADVAIR DISKUS 100/50 [Concomitant]
  4. ARAVA [Concomitant]
  5. CLARITIN-D [Concomitant]
  6. LIPITOR [Concomitant]
  7. MEDROL [Concomitant]
  8. PROVENTIL [Concomitant]
  9. SINGULAIR [Concomitant]
  10. VITAMIN D (UNSPECIFIED) [Concomitant]

REACTIONS (15)
  - ANXIETY [None]
  - BASAL CELL CARCINOMA [None]
  - CATARACT [None]
  - DEPRESSION [None]
  - DRUG ADMINISTRATION ERROR [None]
  - FATIGUE [None]
  - MUSCULOSKELETAL STIFFNESS [None]
  - OEDEMA PERIPHERAL [None]
  - ONYCHOMYCOSIS [None]
  - OSTEONECROSIS [None]
  - OSTEOPENIA [None]
  - SINUSITIS [None]
  - TENDON RUPTURE [None]
  - TINEA PEDIS [None]
  - VISUAL IMPAIRMENT [None]
